FAERS Safety Report 11247620 (Version 1)
Quarter: 2015Q2

REPORT INFORMATION
  Report Type: Report from Study
  Country: US (occurrence: None)
  Receive Date: 20150617
  Receipt Date: 20150617
  Transmission Date: 20150821
  Serious: No
  Sender: FDA-Public Use
  Company Number: 2014TASUS000459

PATIENT
  Age: 36 Year
  Sex: Male
  Weight: 83.4 kg

DRUGS (4)
  1. DEXILANT [Concomitant]
     Active Substance: DEXLANSOPRAZOLE
  2. LATUDA (LURASIDONE HYDROCHLORIDE) [Concomitant]
  3. HETLIOZ [Suspect]
     Active Substance: TASIMELTEON
     Indication: CIRCADIAN RHYTHM SLEEP DISORDER
     Route: 048
     Dates: start: 20140725, end: 20140729
  4. LITHIUM CARBONATE (LITHIUM CARBONATE) [Concomitant]
     Active Substance: LITHIUM CARBONATE

REACTIONS (4)
  - Rash [None]
  - Blister [None]
  - Urticaria [None]
  - Adverse reaction [None]

NARRATIVE: CASE EVENT DATE: 201407
